FAERS Safety Report 19447007 (Version 1)
Quarter: 2021Q2

REPORT INFORMATION
  Report Type: Spontaneous
  Country: US (occurrence: US)
  Receive Date: 20210622
  Receipt Date: 20210622
  Transmission Date: 20210717
  Serious: No
  Sender: FDA-Public Use
  Company Number: US-HIKMA PHARMACEUTICALS USA INC.-US-H14001-20-05297

PATIENT
  Age: 82 Year
  Sex: Female
  Weight: 56.24 kg

DRUGS (3)
  1. VITAMIN NOS [Concomitant]
     Active Substance: VITAMINS
     Indication: PRODUCT USED FOR UNKNOWN INDICATION
     Dosage: UNKNOWN
     Route: 065
  2. ASPIRIN. [Concomitant]
     Active Substance: ASPIRIN
     Indication: PRODUCT USED FOR UNKNOWN INDICATION
     Dosage: UNKNOWN
     Route: 065
  3. FLUTICASONE PROPIONATE. [Suspect]
     Active Substance: FLUTICASONE PROPIONATE
     Indication: PRURITUS
     Dosage: UNKNOWN
     Route: 061
     Dates: start: 2019, end: 202002

REACTIONS (4)
  - Alopecia [Not Recovered/Not Resolved]
  - Hair texture abnormal [Not Recovered/Not Resolved]
  - Drug effective for unapproved indication [Recovered/Resolved]
  - Intentional product use issue [Recovered/Resolved]

NARRATIVE: CASE EVENT DATE: 2019
